FAERS Safety Report 20769950 (Version 2)
Quarter: 2022Q2

REPORT INFORMATION
  Report Type: Spontaneous
  Country: DE (occurrence: None)
  Receive Date: 20220429
  Receipt Date: 20220503
  Transmission Date: 20220720
  Serious: Yes (Hospitalization, Other)
  Sender: FDA-Public Use
  Company Number: 2022A162428

PATIENT
  Sex: Female

DRUGS (1)
  1. EVUSHELD [Suspect]
     Active Substance: CILGAVIMAB\TIXAGEVIMAB
     Indication: COVID-19 prophylaxis
     Dosage: 300.0MG ONCE/SINGLE ADMINISTRATION
     Route: 030
     Dates: start: 20220325

REACTIONS (3)
  - Neuralgic amyotrophy [Unknown]
  - COVID-19 [Unknown]
  - General physical health deterioration [Unknown]

NARRATIVE: CASE EVENT DATE: 20220330
